FAERS Safety Report 23762757 (Version 10)
Quarter: 2025Q2

REPORT INFORMATION
  Report Type: Report from Study
  Country: CO (occurrence: CO)
  Receive Date: 20240419
  Receipt Date: 20250420
  Transmission Date: 20250717
  Serious: Yes (Other)
  Sender: NOVARTIS
  Company Number: CO-002147023-NVSC2024CO083075

PATIENT
  Age: 60 Year
  Sex: Female
  Weight: 65 kg

DRUGS (11)
  1. TASIGNA [Suspect]
     Active Substance: NILOTINIB
     Indication: Philadelphia positive chronic myeloid leukaemia
     Dosage: 400 MG, Q12H
     Route: 048
     Dates: start: 20150101
  2. TASIGNA [Suspect]
     Active Substance: NILOTINIB
     Dosage: 1 DOSAGE FORM, Q12H (1 DOSAGE FORM OF 200 MG)
     Route: 048
  3. TASIGNA [Suspect]
     Active Substance: NILOTINIB
     Dosage: 200 MG, Q12H (IN THE MORNING AND AT NIGHT)
     Route: 048
     Dates: start: 2015
  4. TASIGNA [Suspect]
     Active Substance: NILOTINIB
     Dosage: 200 MG, Q12H (IN THE MORNING AND AT NIGHT)
     Route: 048
  5. TASIGNA [Suspect]
     Active Substance: NILOTINIB
     Dosage: 200 MG, Q12H
     Route: 048
  6. LEVOTHYROXINE [Concomitant]
     Active Substance: LEVOTHYROXINE
     Indication: Product used for unknown indication
     Route: 065
  7. LEVOTHYROXINE [Concomitant]
     Active Substance: LEVOTHYROXINE
     Route: 065
  8. ROSUVASTATIN [Concomitant]
     Active Substance: ROSUVASTATIN
     Indication: Product used for unknown indication
     Dosage: 20 MG, QD
     Route: 065
  9. VITAMIN D NOS [Concomitant]
     Active Substance: CHOLECALCIFEROL\ERGOCALCIFEROL
     Indication: Product used for unknown indication
     Route: 065
  10. CALCIUM CITRATE [Concomitant]
     Active Substance: CALCIUM CITRATE
     Indication: Product used for unknown indication
     Dosage: 1 DOSAGE FORM, QD
     Route: 065
  11. DENOSUMAB [Concomitant]
     Active Substance: DENOSUMAB
     Indication: Product used for unknown indication
     Route: 065

REACTIONS (27)
  - Nerve injury [Unknown]
  - Hyperhidrosis [Recovered/Resolved]
  - Osteoporosis [Unknown]
  - Herpes virus infection [Recovered/Resolved]
  - Rhinitis [Recovered/Resolved]
  - Facial paralysis [Not Recovered/Not Resolved]
  - Headache [Unknown]
  - Influenza [Recovered/Resolved]
  - Blepharospasm [Not Recovered/Not Resolved]
  - Pain [Recovered/Resolved]
  - Tongue disorder [Unknown]
  - Toxicity to various agents [Unknown]
  - Pain in jaw [Unknown]
  - Drug intolerance [Unknown]
  - Memory impairment [Unknown]
  - Erythema [Unknown]
  - Gastroenteritis [Unknown]
  - Ear pain [Unknown]
  - Insomnia [Unknown]
  - Neck pain [Unknown]
  - Arthralgia [Unknown]
  - Glossitis [Unknown]
  - Viral infection [Unknown]
  - Malaise [Unknown]
  - Vomiting [Unknown]
  - Diarrhoea [Unknown]
  - Incorrect dose administered [Unknown]

NARRATIVE: CASE EVENT DATE: 20240329
